FAERS Safety Report 8996170 (Version 2)
Quarter: 2013Q1

REPORT INFORMATION
  Report Type: Report from Study
  Country: DE (occurrence: DE)
  Receive Date: 20130103
  Receipt Date: 20130325
  Transmission Date: 20140127
  Serious: Yes (Hospitalization)
  Sender: FDA-Public Use
  Company Number: DE-BAXTER-2012BAX029097

PATIENT
  Sex: Male

DRUGS (11)
  1. ENDOXAN 1G [Suspect]
     Indication: B-CELL LYMPHOMA
     Route: 042
     Dates: start: 20121204
  2. RITUXIMAB [Suspect]
     Indication: B-CELL LYMPHOMA
     Route: 042
     Dates: start: 20121204
  3. DOXORUBICIN [Suspect]
     Indication: B-CELL LYMPHOMA
     Route: 042
     Dates: start: 20121204
  4. PREDNISONE [Suspect]
     Indication: B-CELL LYMPHOMA
     Route: 048
     Dates: start: 20121204
  5. VINCRISTINE [Suspect]
     Indication: B-CELL LYMPHOMA
     Route: 042
     Dates: start: 20121207
  6. FILGRASTIM [Suspect]
     Indication: B-CELL LYMPHOMA
     Dosage: 30 MIO. IE
     Route: 048
     Dates: start: 20121214, end: 20121215
  7. LEVOTHYROXINE SODIUM [Concomitant]
     Indication: PRODUCT USED FOR UNKNOWN INDICATION
     Route: 048
  8. FENOTEROL [Concomitant]
     Indication: PRODUCT USED FOR UNKNOWN INDICATION
     Route: 048
  9. BUDESONID [Concomitant]
     Indication: ASTHMA
     Dosage: 1 HUB
     Route: 048
  10. PANTOPRAZOL [Concomitant]
     Indication: PRODUCT USED FOR UNKNOWN INDICATION
     Route: 048
  11. PANTOPRAZOL [Concomitant]
     Indication: PRODUCT USED FOR UNKNOWN INDICATION
     Route: 048

REACTIONS (1)
  - Bronchopneumonia [Recovered/Resolved]
